FAERS Safety Report 6524852-4 (Version None)
Quarter: 2010Q1

REPORT INFORMATION
  Report Type: 
  Country: None (occurrence: None)
  Receive Date: 20100104
  Receipt Date: 20091224
  Transmission Date: 20100710
  Serious: Yes (Hospitalization)
  Sender: FDA-Public Use
  Company Number: PHHY2009GB59314

PATIENT
  Age: 68 Year
  Sex: Male

DRUGS (19)
  1. ALISKIREN [Suspect]
     Indication: HYPERTENSION
     Dosage: 150 MG PER DAY
  2. ALLOPURINOL [Concomitant]
  3. BISOPROLOL FUMARATE [Concomitant]
  4. CALCIUM RESONIUM [Concomitant]
  5. CANDESARTAN CILEXETIL [Concomitant]
  6. DILTIAZEM [Concomitant]
  7. DOXAZOSIN [Concomitant]
  8. FUROSEMIDE [Concomitant]
  9. IPRATROPIUM BROMIDE [Concomitant]
  10. LACTULOSE [Concomitant]
  11. METFORMIN [Concomitant]
  12. ORAMORPH SR [Concomitant]
  13. OXYCODONE [Concomitant]
  14. OXYCONTIN [Concomitant]
  15. PARACETAMOL [Concomitant]
  16. ALBUTEROL [Concomitant]
  17. SIMVASTATIN [Concomitant]
  18. SPIRONOLACTONE [Concomitant]
  19. WARFARIN SODIUM [Concomitant]

REACTIONS (2)
  - HYPERKALAEMIA [None]
  - RENAL FAILURE ACUTE [None]
